FAERS Safety Report 11078739 (Version 1)
Quarter: 2015Q2

REPORT INFORMATION
  Report Type: Spontaneous
  Country: US (occurrence: US)
  Receive Date: 20150430
  Receipt Date: 20150430
  Transmission Date: 20150821
  Serious: No
  Sender: FDA-Public Use
  Company Number: US-BIOGENIDEC-2015BI056704

PATIENT
  Age: 65 Year
  Sex: Male

DRUGS (22)
  1. VITAMIN B COMPLEX [Concomitant]
     Active Substance: CYANOCOBALAMIN\DEXPANTHENOL\NIACINAMIDE\PYRIDOXINE HYDROCHLORIDE\RIBOFLAVIN 5^-PHOSPHATE SODIUM\THIAMINE HYDROCHLORIDE\VITAMIN B COMPLEX
  2. NORTRIPTYLINE HCL [Concomitant]
     Active Substance: NORTRIPTYLINE HYDROCHLORIDE
  3. LISINOPRIL. [Concomitant]
     Active Substance: LISINOPRIL
  4. TIZANIDINE HCL [Concomitant]
     Active Substance: TIZANIDINE HYDROCHLORIDE
  5. VITAMIN C PLUS [Concomitant]
  6. VITAMIN D [Concomitant]
     Active Substance: CHOLECALCIFEROL
  7. AMPYRA [Concomitant]
     Active Substance: DALFAMPRIDINE
  8. FIBER [Concomitant]
     Active Substance: PSYLLIUM HUSK
  9. GABAPENTIN. [Concomitant]
     Active Substance: GABAPENTIN
  10. TYLENOL COLD MULTI-SYMPTOM DAY [Concomitant]
  11. TECFIDERA [Suspect]
     Active Substance: DIMETHYL FUMARATE
     Indication: MULTIPLE SCLEROSIS
     Route: 048
  12. ABILIFY [Concomitant]
     Active Substance: ARIPIPRAZOLE
  13. ASPIRIN. [Concomitant]
     Active Substance: ASPIRIN
  14. MODAFINIL. [Concomitant]
     Active Substance: MODAFINIL
  15. TERAZOSIN HCL [Concomitant]
     Active Substance: TERAZOSIN HYDROCHLORIDE
  16. ZYRTEC ALLERGY [Concomitant]
  17. METOPROLOL TARTRATE. [Concomitant]
     Active Substance: METOPROLOL TARTRATE
  18. BUPTOPRION HCL ER [Concomitant]
  19. CALCIUM CITRATE-VIT D [Concomitant]
  20. PRILOSEC [Concomitant]
     Active Substance: OMEPRAZOLE MAGNESIUM
  21. LATANOPROST. [Concomitant]
     Active Substance: LATANOPROST
  22. SIMPLE SYRUP [Concomitant]

REACTIONS (1)
  - Laboratory test abnormal [Unknown]
